FAERS Safety Report 9702144 (Version 1)
Quarter: 2013Q4

REPORT INFORMATION
  Report Type: Spontaneous
  Country: IT (occurrence: IT)
  Receive Date: 20131121
  Receipt Date: 20131121
  Transmission Date: 20140711
  Serious: Yes (Hospitalization)
  Sender: FDA-Public Use
  Company Number: IT-GILEAD-2013-0088117

PATIENT
  Age: 93 Year
  Sex: Female
  Weight: 60 kg

DRUGS (1)
  1. RANOLAZINE [Suspect]
     Indication: MYOCARDIAL ISCHAEMIA
     Dosage: 375 MG, QD
     Route: 048
     Dates: start: 20131018, end: 20131024

REACTIONS (8)
  - Off label use [Recovered/Resolved]
  - Asthenia [Recovered/Resolved]
  - Hallucination, visual [Recovered/Resolved]
  - Hallucination, auditory [Recovered/Resolved]
  - Headache [Recovered/Resolved]
  - Nausea [Recovered/Resolved]
  - Tremor [Recovered/Resolved]
  - Vomiting [Recovered/Resolved]
